FAERS Safety Report 4353272-6 (Version None)
Quarter: 2004Q2

REPORT INFORMATION
  Report Type: 
  Country: None (occurrence: None)
  Receive Date: 20040505
  Receipt Date: 20040422
  Transmission Date: 20050107
  Serious: Yes (Hospitalization)
  Sender: FDA-Public Use
  Company Number: JP-BRISTOL-MYERS SQUIBB COMPANY-12575155

PATIENT
  Age: 57 Year
  Sex: Female
  Weight: 50 kg

DRUGS (3)
  1. SINEMET [Suspect]
     Indication: PARKINSON'S DISEASE
     Route: 048
  2. AMANTADINE HCL [Concomitant]
     Dates: end: 20021001
  3. CABERGOLINE [Concomitant]
     Dates: end: 20030416

REACTIONS (8)
  - BLOOD CREATINE PHOSPHOKINASE INCREASED [None]
  - DELIRIUM [None]
  - GAIT DISTURBANCE [None]
  - HALLUCINATION [None]
  - HALLUCINATION, AUDITORY [None]
  - INSOMNIA [None]
  - MALAISE [None]
  - OEDEMA PERIPHERAL [None]
